FAERS Safety Report 8820491 (Version 1)
Quarter: 2012Q4

REPORT INFORMATION
  Report Type: 
  Country: US (occurrence: US)
  Receive Date: 20121002
  Receipt Date: 20121002
  Transmission Date: 20130627
  Serious: No
  Sender: FDA-Public Use
  Company Number: US-BAYER-2012-099844

PATIENT
  Age: 23 Year
  Sex: Female

DRUGS (1)
  1. GADAVIST [Suspect]
     Indication: IMAGING PROCEDURE
     Dosage: 4 ml, UNK
     Route: 042
     Dates: start: 20120913

REACTIONS (1)
  - Nausea [None]
